FAERS Safety Report 6442272-8 (Version None)
Quarter: 2009Q4

REPORT INFORMATION
  Report Type: 
  Country: None (occurrence: None)
  Receive Date: 20091112
  Receipt Date: 20091012
  Transmission Date: 20100525
  Serious: Yes (Other)
  Sender: FDA-Public Use
  Company Number: ACTA012974

PATIENT
  Age: 39 Year
  Sex: Male

DRUGS (1)
  1. SORIATANE [Suspect]
     Indication: PUSTULAR PSORIASIS
     Dosage: 30 MG MILLIGRAM(S), DOSAGE(S)= 1INTERVAL=1 DAY(S); ORAL
     Route: 048
     Dates: start: 20090201

REACTIONS (1)
  - ONYCHOMADESIS [None]
